FAERS Safety Report 10740045 (Version 1)
Quarter: 2015Q1

REPORT INFORMATION
  Report Type: Report from Study
  Country: US (occurrence: US)
  Receive Date: 20150127
  Receipt Date: 20150127
  Transmission Date: 20150721
  Serious: Yes (Other)
  Sender: FDA-Public Use
  Company Number: US-AMGEN-USASL2015006406

PATIENT
  Age: 46 Year
  Sex: Female

DRUGS (1)
  1. ENBREL [Suspect]
     Active Substance: ETANERCEPT
     Indication: PSORIASIS
     Dosage: 50 MG, 2 TIMES/WK
     Route: 065
     Dates: start: 20140819, end: 20141210

REACTIONS (7)
  - Localised infection [Not Recovered/Not Resolved]
  - Staphylococcal infection [Not Recovered/Not Resolved]
  - Bronchitis [Recovered/Resolved]
  - Psoriasis [Not Recovered/Not Resolved]
  - Body temperature increased [Recovered/Resolved]
  - Mobility decreased [Not Recovered/Not Resolved]
  - Lip infection [Not Recovered/Not Resolved]

NARRATIVE: CASE EVENT DATE: 20141231
